FAERS Safety Report 14245929 (Version 1)
Quarter: 2017Q4

REPORT INFORMATION
  Report Type: Spontaneous
  Country: DE (occurrence: DE)
  Receive Date: 20171204
  Receipt Date: 20171204
  Transmission Date: 20180321
  Serious: Yes (Hospitalization, Other)
  Sender: FDA-Public Use
  Company Number: DE-BRISTOL-MYERS SQUIBB COMPANY-BMS-2017-106856

PATIENT
  Age: 76 Year
  Sex: Female

DRUGS (1)
  1. SPRYCEL [Suspect]
     Active Substance: DASATINIB
     Indication: CHRONIC MYELOID LEUKAEMIA
     Dosage: 100 MG, QD
     Route: 065
     Dates: start: 201411

REACTIONS (8)
  - Eyelid oedema [Unknown]
  - Peripheral artery occlusion [Unknown]
  - Left ventricular hypertrophy [Unknown]
  - Chest discomfort [Unknown]
  - Dyspnoea [Unknown]
  - Pleural effusion [Unknown]
  - Fatigue [Unknown]
  - Hypertension [Unknown]
